FAERS Safety Report 20350119 (Version 2)
Quarter: 2022Q1

REPORT INFORMATION
  Report Type: Spontaneous
  Country: US (occurrence: US)
  Receive Date: 20220119
  Receipt Date: 20220206
  Transmission Date: 20220423
  Serious: No
  Sender: FDA-Public Use
  Company Number: US-NOVARTISTESTPH-NVSC2022US010038

PATIENT
  Age: 39 Year
  Sex: Female

DRUGS (1)
  1. VOTRIENT [Suspect]
     Active Substance: PAZOPANIB HYDROCHLORIDE
     Indication: Malignant connective tissue neoplasm
     Dosage: 800 MG, QD
     Route: 048
     Dates: start: 20211111

REACTIONS (3)
  - Vision blurred [Unknown]
  - Dyspepsia [Unknown]
  - Hair colour changes [Unknown]

NARRATIVE: CASE EVENT DATE: 20211230
